FAERS Safety Report 8850763 (Version 2)
Quarter: 2013Q1

REPORT INFORMATION
  Report Type: Spontaneous
  Country: US (occurrence: US)
  Receive Date: 20121019
  Receipt Date: 20130118
  Transmission Date: 20140127
  Serious: No
  Sender: FDA-Public Use
  Company Number: US-009507513-1209USA009248

PATIENT
  Age: 62 Year
  Sex: Female

DRUGS (6)
  1. ASMANEX TWISTHALER [Suspect]
     Indication: CHEST DISCOMFORT
     Dosage: UNK, PRN
     Route: 055
  2. PROTONIX [Concomitant]
  3. LEXAPRO [Concomitant]
  4. VICTOZA [Concomitant]
  5. CLONAZEPAM [Concomitant]
  6. LANTUS [Concomitant]

REACTIONS (3)
  - Pneumonia [Recovering/Resolving]
  - Product quality issue [Unknown]
  - Inappropriate schedule of drug administration [Unknown]
